FAERS Safety Report 11364934 (Version 1)
Quarter: 2015Q3

REPORT INFORMATION
  Report Type: Spontaneous
  Country: BE (occurrence: BE)
  Receive Date: 20150811
  Receipt Date: 20150811
  Transmission Date: 20151125
  Serious: Yes (Hospitalization, Other)
  Sender: FDA-Public Use
  Company Number: BE-BAXTER-2015BAX043644

PATIENT
  Age: 75 Year
  Sex: Female
  Weight: 68 kg

DRUGS (15)
  1. XGEVA [Concomitant]
     Active Substance: DENOSUMAB
     Indication: METASTASES TO BONE
     Route: 058
     Dates: start: 20131115
  2. HERCEPTIN [Suspect]
     Active Substance: TRASTUZUMAB
     Indication: BREAST CANCER
     Route: 065
     Dates: start: 201312
  3. ZALDIAR [Suspect]
     Active Substance: ACETAMINOPHEN\TRAMADOL HYDROCHLORIDE
     Indication: PAIN
     Route: 048
  4. NAVELBINE [Suspect]
     Active Substance: VINORELBINE TARTRATE
     Indication: BREAST CANCER
     Route: 042
     Dates: start: 20150701, end: 20150701
  5. REMERGON [Suspect]
     Active Substance: MIRTAZAPINE
     Indication: DEPRESSION
     Route: 048
  6. CRESTOR [Concomitant]
     Active Substance: ROSUVASTATIN CALCIUM
     Indication: HYPERCHOLESTEROLAEMIA
     Route: 048
  7. ENDOXAN 50 MG - COMPRIM?S ENROB?S [Suspect]
     Active Substance: CYCLOPHOSPHAMIDE
     Indication: BREAST CANCER
     Route: 048
     Dates: start: 201312
  8. PERINDOCYL [Concomitant]
     Indication: HYPERTENSION
     Route: 048
  9. REMERGON [Concomitant]
     Active Substance: MIRTAZAPINE
     Indication: DEPRESSION
     Route: 048
  10. PERTUZUMAB [Suspect]
     Active Substance: PERTUZUMAB
     Indication: BREAST CANCER
     Route: 065
     Dates: start: 201312
  11. NOLVADEX [Suspect]
     Active Substance: TAMOXIFEN CITRATE
     Indication: PRODUCT USED FOR UNKNOWN INDICATION
     Route: 065
     Dates: start: 201311, end: 201312
  12. STEOVIT D3 [Concomitant]
     Indication: METASTASES TO BONE
     Route: 048
  13. ZALDIAR [Concomitant]
     Active Substance: ACETAMINOPHEN\TRAMADOL HYDROCHLORIDE
     Indication: PAIN
  14. ASAFLOW [Concomitant]
     Active Substance: ASPIRIN
     Indication: CARDIOVASCULAR EVENT PROPHYLAXIS
     Route: 048
  15. D-CURE [Concomitant]
     Indication: METASTASES TO BONE
     Dosage: 1 VIAL DAILY EVERY MONTH
     Route: 048

REACTIONS (11)
  - Metastases to peritoneum [Unknown]
  - Malignant neoplasm progression [Unknown]
  - Ejection fraction decreased [Unknown]
  - Hepatic lesion [Unknown]
  - Pleural effusion [Unknown]
  - Disease progression [Unknown]
  - Metastases to lung [Unknown]
  - Nausea [Unknown]
  - Ileus paralytic [Recovering/Resolving]
  - Cardiotoxicity [Recovered/Resolved]
  - Ascites [Unknown]

NARRATIVE: CASE EVENT DATE: 201312
